FAERS Safety Report 8286770-3 (Version None)
Quarter: 2012Q2

REPORT INFORMATION
  Report Type: 
  Country: None (occurrence: None)
  Receive Date: 20120411
  Receipt Date: 20120402
  Transmission Date: 20120825
  Serious: Yes (Other)
  Sender: FDA-Public Use
  Company Number: KAD201204-000227

PATIENT
  Age: 51 Year
  Sex: Male

DRUGS (1)
  1. RIBAVIRIN [Suspect]

REACTIONS (3)
  - ABSCESS [None]
  - FATIGUE [None]
  - ASTHENIA [None]
